FAERS Safety Report 23512004 (Version 11)
Quarter: 2024Q3

REPORT INFORMATION
  Report Type: Report from Study
  Country: CA (occurrence: CA)
  Receive Date: 20240212
  Receipt Date: 20240904
  Transmission Date: 20241017
  Serious: Yes (Hospitalization)
  Sender: JOHNSON AND JOHNSON
  Company Number: CA-JNJFOC-20231169052

PATIENT
  Age: 41 Year
  Sex: Female

DRUGS (14)
  1. REMICADE [Suspect]
     Active Substance: INFLIXIMAB
     Indication: Psoriatic arthropathy
     Dosage: 23D106, EXPIRY DATE:JUN-2026;23D147,EXPIRY DATE:AUG-2026, 01-AUG-2026
     Route: 041
     Dates: start: 20080609
  2. REMICADE [Suspect]
     Active Substance: INFLIXIMAB
     Dosage: 23D106, EXPIRY DATE:JUN-2026;23D147,EXPIRY DATE:AUG-2026, 01-AUG-2026
     Route: 041
  3. REMICADE [Suspect]
     Active Substance: INFLIXIMAB
     Route: 041
  4. REMICADE [Suspect]
     Active Substance: INFLIXIMAB
     Route: 041
     Dates: start: 20080609
  5. REMICADE [Suspect]
     Active Substance: INFLIXIMAB
     Route: 041
  6. REMICADE [Suspect]
     Active Substance: INFLIXIMAB
     Route: 041
  7. ELAVIL [Concomitant]
     Active Substance: AMITRIPTYLINE HYDROCHLORIDE
  8. PANTOPRAZOLE SODIUM [Concomitant]
     Active Substance: PANTOPRAZOLE SODIUM
  9. CORTEF [Concomitant]
     Active Substance: HYDROCORTISONE
  10. SYNTHROID [Concomitant]
     Active Substance: LEVOTHYROXINE SODIUM
  11. CETIRIZINE HYDROCHLORIDE [Concomitant]
     Active Substance: CETIRIZINE HYDROCHLORIDE
  12. CETIRIZINE [Concomitant]
     Active Substance: CETIRIZINE HYDROCHLORIDE
  13. AMITRIPTYLINE [Concomitant]
     Active Substance: AMITRIPTYLINE
  14. ACETAMINOPHEN [Concomitant]
     Active Substance: ACETAMINOPHEN

REACTIONS (28)
  - Chest pain [Recovered/Resolved]
  - Endometrial ablation [Recovered/Resolved]
  - Injection site bruising [Recovering/Resolving]
  - Injection site discomfort [Recovering/Resolving]
  - Acanthosis nigricans [Not Recovered/Not Resolved]
  - Stress [Not Recovered/Not Resolved]
  - Seasonal allergy [Not Recovered/Not Resolved]
  - Musculoskeletal chest pain [Recovered/Resolved]
  - Weight decreased [Not Recovered/Not Resolved]
  - Cold sweat [Recovered/Resolved]
  - Hot flush [Recovered/Resolved]
  - Anorectal discomfort [Recovered/Resolved]
  - Gastrointestinal disorder [Recovering/Resolving]
  - Diarrhoea [Recovered/Resolved]
  - Myalgia [Not Recovered/Not Resolved]
  - Arthralgia [Recovering/Resolving]
  - Hypersensitivity [Not Recovered/Not Resolved]
  - Influenza [Recovered/Resolved]
  - Streptococcal infection [Unknown]
  - Infusion related reaction [Recovered/Resolved]
  - Insomnia [Not Recovered/Not Resolved]
  - Urticaria [Recovering/Resolving]
  - Pyrexia [Recovered/Resolved]
  - Abdominal pain [Unknown]
  - Nausea [Recovered/Resolved]
  - Intervertebral disc protrusion [Not Recovered/Not Resolved]
  - Dysphonia [Unknown]
  - Migraine [Unknown]

NARRATIVE: CASE EVENT DATE: 20240305
